FAERS Safety Report 8015607-2 (Version None)
Quarter: 2011Q4

REPORT INFORMATION
  Report Type: 
  Country: None (occurrence: None)
  Receive Date: 20111230
  Receipt Date: 20111222
  Transmission Date: 20120403
  Serious: Yes (Hospitalization)
  Sender: FDA-Public Use
  Company Number: US-BAYER-2011-098309

PATIENT
  Age: 41 Year
  Sex: Female
  Weight: 77.098 kg

DRUGS (7)
  1. YAZ [Suspect]
     Indication: PREMENSTRUAL SYNDROME
     Dosage: UNK
     Route: 048
     Dates: start: 20090501, end: 20091001
  2. MORPHINE [Concomitant]
     Indication: PAIN
  3. PERCOCET [Concomitant]
     Dosage: AS NEEDED
  4. DILAUDID [Concomitant]
  5. AZITHROMYCIN [Concomitant]
     Indication: PNEUMONIA
  6. ZOFRAN [Concomitant]
  7. PHENERGAN [Concomitant]
     Indication: NAUSEA

REACTIONS (4)
  - PULMONARY THROMBOSIS [None]
  - INJURY [None]
  - PULMONARY EMBOLISM [None]
  - CHEST PAIN [None]
